FAERS Safety Report 7668005-5 (Version None)
Quarter: 2011Q3

REPORT INFORMATION
  Report Type: 
  Country: None (occurrence: None)
  Receive Date: 20110808
  Receipt Date: 20110803
  Transmission Date: 20111222
  Serious: No
  Sender: FDA-Public Use
  Company Number: US-PFIZER INC-2011178360

PATIENT
  Sex: Female
  Weight: 104 kg

DRUGS (2)
  1. PROCARDIA [Suspect]
     Dosage: UNK
  2. ACCUPRIL [Suspect]
     Dosage: UNK

REACTIONS (2)
  - RASH [None]
  - CONSTIPATION [None]
